FAERS Safety Report 7387066-4 (Version None)
Quarter: 2011Q1

REPORT INFORMATION
  Report Type: 
  Country: None (occurrence: None)
  Receive Date: 20110331
  Receipt Date: 20110329
  Transmission Date: 20110831
  Serious: Yes (Hospitalization)
  Sender: FDA-Public Use
  Company Number: EC-MERCK-1103PER00008

PATIENT
  Age: 82 Year
  Sex: Male

DRUGS (4)
  1. INVANZ [Suspect]
     Indication: CHOLELITHIASIS
     Route: 042
  2. INVANZ [Suspect]
     Indication: CHOLECYSTITIS
     Route: 042
  3. ENOXAPARIN SODIUM [Concomitant]
     Route: 058
  4. OMEPRAZOLE [Concomitant]
     Route: 042

REACTIONS (3)
  - PSYCHOMOTOR HYPERACTIVITY [None]
  - DELIRIUM [None]
  - HALLUCINATION, VISUAL [None]
